FAERS Safety Report 5037994-X (Version None)
Quarter: 2006Q2

REPORT INFORMATION
  Report Type: 
  Country: None (occurrence: None)
  Receive Date: 20060616
  Receipt Date: 20051107
  Transmission Date: 20061013
  Serious: Yes (Hospitalization)
  Sender: FDA-Public Use
  Company Number: NUBN20050021

PATIENT
  Age: 36 Year
  Sex: Male
  Weight: 112.0385 kg

DRUGS (18)
  1. NUBAIN [Suspect]
     Indication: MIGRAINE
     Dosage: ONCE INJ
     Dates: start: 20050914, end: 20050914
  2. FENTANYL [Suspect]
     Indication: BREAKTHROUGH PAIN
     Dosage: 400UG PRN BUCCAL
     Route: 002
     Dates: start: 20050729
  3. SUMATRIPTAN SUCCINATE [Concomitant]
  4. ELETRIPTAN [Concomitant]
  5. TOPIRAMATE [Concomitant]
  6. PERCOCET [Concomitant]
  7. CARISOPRODOL [Concomitant]
  8. OXYCONTIN [Concomitant]
  9. FENTANYL TRANSDERMAL SYSTEM [Concomitant]
  10. ZOLPIDEM TARTRATE [Concomitant]
  11. POLYETHYLENE GLYCOL [Concomitant]
  12. CLONAZEPAM [Concomitant]
  13. ALPRAZOLAM [Concomitant]
  14. ESCITALOPRAM [Concomitant]
  15. ALBUTEROL SPIROS [Concomitant]
  16. PROMETHAZINE [Concomitant]
  17. ROLAIDS [Concomitant]
  18. EX-LAX [Concomitant]

REACTIONS (2)
  - DRUG INTERACTION [None]
  - DRUG WITHDRAWAL SYNDROME [None]
